FAERS Safety Report 10410358 (Version 2)
Quarter: 2014Q3

REPORT INFORMATION
  Report Type: Spontaneous
  Country: US (occurrence: US)
  Receive Date: 20140826
  Receipt Date: 20140826
  Transmission Date: 20150326
  Serious: Yes (Death, Hospitalization)
  Sender: FDA-Public Use
  Company Number: US-GLAXOSMITHKLINE-A0758154A

PATIENT
  Age: 65 Year
  Sex: Female
  Weight: 97.3 kg

DRUGS (3)
  1. AVANDIA [Suspect]
     Active Substance: ROSIGLITAZONE MALEATE
     Indication: TYPE 2 DIABETES MELLITUS
     Dosage: 4MG PER DAY
     Route: 048
     Dates: start: 20031205, end: 20051012
  2. LOPRESSOR [Concomitant]
     Active Substance: METOPROLOL TARTRATE
  3. CRESTOR [Concomitant]
     Active Substance: ROSUVASTATIN CALCIUM

REACTIONS (5)
  - Cardiogenic shock [Unknown]
  - Cardiac arrest [Fatal]
  - Acute myocardial infarction [Fatal]
  - Renal failure [Fatal]
  - Cardiac failure congestive [Fatal]
